FAERS Safety Report 5678145-8 (Version None)
Quarter: 2008Q1

REPORT INFORMATION
  Report Type: 
  Country: None (occurrence: None)
  Receive Date: 20080324
  Receipt Date: 20080324
  Transmission Date: 20080703
  Serious: Yes (Hospitalization)
  Sender: FDA-Public Use
  Company Number: None

PATIENT
  Age: 51 Year
  Sex: Female
  Weight: 86.1834 kg

DRUGS (1)
  1. BYETTA [Suspect]
     Indication: DIABETES MELLITUS
     Dosage: 10MG   1X EVENING MEAL

REACTIONS (6)
  - ABNORMAL BEHAVIOUR [None]
  - ANGIOPATHY [None]
  - FEELING ABNORMAL [None]
  - HYPOGLYCAEMIA [None]
  - PAIN IN EXTREMITY [None]
  - THINKING ABNORMAL [None]
